FAERS Safety Report 16386640 (Version 3)
Quarter: 2021Q1

REPORT INFORMATION
  Report Type: Other
  Country: DK (occurrence: DK)
  Receive Date: 20190604
  Receipt Date: 20210331
  Transmission Date: 20210419
  Serious: Yes (Hospitalization, Disabling)
  Sender: FDA-Public Use
  Company Number: DK-CELLTRION INC.-2019DK021242

PATIENT

DRUGS (4)
  1. PREDNISOLONE. [Concomitant]
     Active Substance: PREDNISOLONE
     Indication: COLITIS ULCERATIVE
     Dosage: STRENGTH: VARYING, FROM 1?25 MG. DOSAGE: 5?45 MG. (PHARMACEUTICAL DOSE FORM: 245)
     Route: 048
     Dates: start: 20181116, end: 20190125
  2. ASACOL [Suspect]
     Active Substance: MESALAMINE
     Indication: COLITIS ULCERATIVE
     Dosage: STRENGTH: 800MG
     Route: 048
     Dates: start: 201509, end: 20190423
  3. INFLECTRA [Suspect]
     Active Substance: INFLIXIMAB-DYYB
     Indication: COLITIS ULCERATIVE
     Dosage: STRENGTH: 100 MG, FROM NOV2018, HAD 400 MG THREE TIMES. FROM 08FEB2019 800 MG ONCE.(PHARMACEUTICAL D
     Route: 065
     Dates: start: 20181116, end: 20190208
  4. SOLU?MEDROL [Concomitant]
     Active Substance: METHYLPREDNISOLONE SODIUM SUCCINATE
     Indication: COLITIS ULCERATIVE
     Dosage: STRENGTH: UNKNOWN. DOSAGE: UNKNOWN.
     Dates: start: 201811, end: 201911

REACTIONS (13)
  - Cough [Unknown]
  - Myalgia [Unknown]
  - Organising pneumonia [Not Recovered/Not Resolved]
  - Endotracheal intubation [Recovered/Resolved]
  - Respiratory failure [Unknown]
  - Pulmonary fibrosis [Not Recovered/Not Resolved]
  - Dyspnoea [Recovering/Resolving]
  - Pyrexia [Unknown]
  - C-reactive protein increased [Recovering/Resolving]
  - Pneumonia [Not Recovered/Not Resolved]
  - Overdose [Unknown]
  - Arthralgia [Unknown]
  - Interstitial lung disease [Not Recovered/Not Resolved]

NARRATIVE: CASE EVENT DATE: 201902
